FAERS Safety Report 10671398 (Version 1)
Quarter: 2014Q4

REPORT INFORMATION
  Report Type: Other
  Country: GB (occurrence: GB)
  Receive Date: 20141223
  Receipt Date: 20141223
  Transmission Date: 20150529
  Serious: Yes (Other)
  Sender: FDA-Public Use
  Company Number: GB-MYLANLABS-2014M1014356

PATIENT

DRUGS (3)
  1. SIMVASTATIN. [Suspect]
     Active Substance: SIMVASTATIN
  2. ATORVASTATIN [Suspect]
     Active Substance: ATORVASTATIN
  3. PERMETHRIN. [Concomitant]
     Active Substance: PERMETHRIN
     Dates: start: 20140415, end: 20140515

REACTIONS (1)
  - Ejaculation failure [Recovered/Resolved]

NARRATIVE: CASE EVENT DATE: 20140728
